FAERS Safety Report 7229631-0 (Version None)
Quarter: 2011Q1

REPORT INFORMATION
  Report Type: 
  Country: None (occurrence: None)
  Receive Date: 20110117
  Receipt Date: 20110105
  Transmission Date: 20110831
  Serious: Yes (Other)
  Sender: FDA-Public Use
  Company Number: PHHY2011US01107

PATIENT
  Sex: Female

DRUGS (1)
  1. EXELON [Suspect]
     Dosage: 9.5 MG
     Route: 062

REACTIONS (3)
  - DELUSION [None]
  - MEMORY IMPAIRMENT [None]
  - HALLUCINATION [None]
